FAERS Safety Report 9612163 (Version 2)
Quarter: 2013Q4

REPORT INFORMATION
  Report Type: Spontaneous
  Country: US (occurrence: US)
  Receive Date: 20131010
  Receipt Date: 20131010
  Transmission Date: 20140711
  Serious: No
  Sender: FDA-Public Use
  Company Number: US-ASTELLAS-2013US010225

PATIENT
  Sex: Male
  Weight: 83 kg

DRUGS (6)
  1. MYRBETRIQ [Suspect]
     Indication: PRODUCT USED FOR UNKNOWN INDICATION
     Dosage: 25 MG, UID/QD
     Route: 048
     Dates: start: 201309, end: 201309
  2. MYRBETRIQ [Suspect]
     Dosage: 25 MG, BID
     Route: 048
     Dates: start: 201309, end: 201309
  3. KEPPRA [Concomitant]
     Indication: CONVULSION
     Dosage: 2500 MG AM, 3000 MG PM
     Route: 048
  4. MIDODRINE [Concomitant]
     Indication: CARDIAC DISORDER
     Dosage: UNK
     Route: 065
  5. FLUDROCORTISONE [Concomitant]
     Indication: CARDIAC DISORDER
     Dosage: UNK
     Route: 065
  6. UNSPECIFIED MEDICATION [Concomitant]
     Indication: BLOOD CHOLESTEROL
     Dosage: UNK
     Route: 065

REACTIONS (2)
  - Inappropriate schedule of drug administration [Unknown]
  - Drug ineffective [Unknown]
